FAERS Safety Report 4512093-1 (Version None)
Quarter: 2004Q4

REPORT INFORMATION
  Report Type: 
  Country: None (occurrence: None)
  Receive Date: 20041129
  Receipt Date: 20041021
  Transmission Date: 20050328
  Serious: Yes (Life-Threatening, Hospitalization)
  Sender: FDA-Public Use
  Company Number: FR-ROCHE-384067

PATIENT
  Age: 72 Year
  Sex: Female
  Weight: 91 kg

DRUGS (10)
  1. XENICAL [Suspect]
     Indication: OBESITY
     Route: 048
     Dates: start: 20041011, end: 20041013
  2. DAFALGAN [Concomitant]
     Indication: DRUG USE FOR UNKNOWN INDICATION
     Route: 065
  3. DIAFUSOR [Concomitant]
     Indication: DRUG USE FOR UNKNOWN INDICATION
     Route: 065
  4. FORADIL [Concomitant]
     Indication: DRUG USE FOR UNKNOWN INDICATION
     Route: 065
  5. LASILIX FAIBLE [Concomitant]
     Indication: DRUG USE FOR UNKNOWN INDICATION
     Route: 065
  6. COTAREG [Concomitant]
     Indication: DRUG USE FOR UNKNOWN INDICATION
     Route: 048
  7. KARDEGIC [Concomitant]
     Indication: DRUG USE FOR UNKNOWN INDICATION
     Route: 048
  8. NEXIUM [Concomitant]
  9. ZOCOR [Concomitant]
     Route: 048
  10. VASTAREL [Concomitant]
     Route: 048

REACTIONS (4)
  - ABDOMINAL PAIN LOWER [None]
  - DIVERTICULITIS [None]
  - FREQUENT BOWEL MOVEMENTS [None]
  - PYREXIA [None]
